FAERS Safety Report 13553970 (Version 2)
Quarter: 2017Q2

REPORT INFORMATION
  Report Type: Spontaneous
  Country: FR (occurrence: FR)
  Receive Date: 20170517
  Receipt Date: 20170606
  Transmission Date: 20170830
  Serious: Yes (Life-Threatening, Hospitalization, Other)
  Sender: FDA-Public Use
  Company Number: FR-GLAXOSMITHKLINE-FR2017GSK070535

PATIENT
  Age: 64 Year
  Sex: Male
  Weight: 80 kg

DRUGS (7)
  1. TRIATEC [Concomitant]
     Active Substance: RAMIPRIL
     Indication: CARDIOVASCULAR EVENT PROPHYLAXIS
     Dosage: 2.5 MG, 1D
  2. TAHOR [Concomitant]
     Active Substance: ATORVASTATIN CALCIUM
     Indication: CARDIOVASCULAR EVENT PROPHYLAXIS
     Dosage: 40 MG, 1D
     Route: 048
  3. CLOPIDOGREL [Concomitant]
     Active Substance: CLOPIDOGREL BISULFATE
     Indication: CARDIOVASCULAR EVENT PROPHYLAXIS
     Route: 048
  4. GENTAMICINE [Concomitant]
     Active Substance: GENTAMICIN
     Dosage: UNK
     Dates: start: 20170419, end: 20170422
  5. TENORMIN [Concomitant]
     Active Substance: ATENOLOL
     Indication: CARDIOVASCULAR EVENT PROPHYLAXIS
     Dosage: 25 MG, BID
     Route: 048
  6. ZOVIRAX [Suspect]
     Active Substance: ACYCLOVIR
     Indication: MENINGOENCEPHALITIS HERPETIC
     Dosage: 600 MG, TID
     Route: 042
     Dates: start: 20170419, end: 20170503
  7. AMOXICILLINE [Concomitant]
     Active Substance: AMOXICILLIN
     Dosage: UNK
     Dates: start: 20170419, end: 20170422

REACTIONS (2)
  - Acute kidney injury [Recovering/Resolving]
  - Transcription medication error [Unknown]

NARRATIVE: CASE EVENT DATE: 20170424
